FAERS Safety Report 6959314-3 (Version None)
Quarter: 2010Q3

REPORT INFORMATION
  Report Type: 
  Country: None (occurrence: None)
  Receive Date: 20100831
  Receipt Date: 20100820
  Transmission Date: 20110219
  Serious: Yes (Other)
  Sender: FDA-Public Use
  Company Number: JP-GILEAD-2010-0031356

PATIENT
  Sex: Male

DRUGS (3)
  1. TRUVADA [Suspect]
     Indication: HIV INFECTION
     Route: 048
     Dates: start: 20100313
  2. PREZISTANAIVE [Suspect]
     Indication: HIV INFECTION
     Route: 048
     Dates: start: 20100313, end: 20100404
  3. NORVIR [Suspect]
     Indication: HIV INFECTION
     Route: 048
     Dates: start: 20100313, end: 20100404

REACTIONS (1)
  - PLATELET COUNT DECREASED [None]
